FAERS Safety Report 8577409-8 (Version None)
Quarter: 2012Q3

REPORT INFORMATION
  Report Type: 
  Country: None (occurrence: None)
  Receive Date: 20120807
  Receipt Date: 20120725
  Transmission Date: 20120928
  Serious: No
  Sender: FDA-Public Use
  Company Number: US-ASTRAZENECA-2012SE53130

PATIENT
  Sex: Male

DRUGS (2)
  1. SYMBICORT [Suspect]
     Route: 055
  2. FLUTICASONE PROPIONATE [Concomitant]

REACTIONS (5)
  - ADVERSE EVENT [None]
  - DYSPNOEA [None]
  - FATIGUE [None]
  - INCREASED BRONCHIAL SECRETION [None]
  - COUGH [None]
